FAERS Safety Report 25462598 (Version 1)
Quarter: 2025Q2

REPORT INFORMATION
  Report Type: Spontaneous
  Country: US (occurrence: US)
  Receive Date: 20250620
  Receipt Date: 20250620
  Transmission Date: 20250717
  Serious: No
  Sender: PFIZER
  Company Number: US-PFIZER INC-202500018405

PATIENT
  Age: 65 Year
  Sex: Female

DRUGS (3)
  1. TUKYSA [Suspect]
     Active Substance: TUCATINIB
     Indication: Breast cancer stage III
     Dosage: 150 MG, 2X/DAY
     Route: 048
  2. TUKYSA [Suspect]
     Active Substance: TUCATINIB
     Dosage: 300 MG, 2X/DAY
  3. XELODA [Concomitant]
     Active Substance: CAPECITABINE
     Indication: Breast cancer stage III

REACTIONS (2)
  - Arthritis [Unknown]
  - Arthralgia [Unknown]
